FAERS Safety Report 11358486 (Version 1)
Quarter: 2015Q3

REPORT INFORMATION
  Report Type: Spontaneous
  Country: US (occurrence: US)
  Receive Date: 20150803
  Receipt Date: 20150803
  Transmission Date: 20151125
  Serious: No
  Sender: FDA-Public Use
  Company Number: US-ELI_LILLY_AND_COMPANY-US_0407104366

PATIENT
  Sex: Male
  Weight: 38.64 kg

DRUGS (1)
  1. ZYPREXA [Suspect]
     Active Substance: OLANZAPINE
     Indication: ATTENTION DEFICIT/HYPERACTIVITY DISORDER
     Dosage: 5 MG, DAILY (1/D)
     Dates: start: 200401

REACTIONS (6)
  - Disturbance in attention [Unknown]
  - Weight increased [Recovered/Resolved]
  - Chest discomfort [Unknown]
  - Enuresis [Unknown]
  - Somnolence [Unknown]
  - Disturbance in social behaviour [Unknown]

NARRATIVE: CASE EVENT DATE: 2004
